FAERS Safety Report 9587127 (Version 2)
Quarter: 2013Q4

REPORT INFORMATION
  Report Type: Spontaneous
  Country: US (occurrence: US)
  Receive Date: 20131003
  Receipt Date: 20131008
  Transmission Date: 20140711
  Serious: No
  Sender: FDA-Public Use
  Company Number: US-009507513-1309USA013332

PATIENT
  Sex: Male
  Weight: 76.64 kg

DRUGS (1)
  1. CLOTRIMAZOLE/BETAMETHASONE DIPROPIONATE (WARRICK) [Suspect]
     Indication: FUNGAL INFECTION
     Dosage: 10MG / 0.643 MG, 45 G
     Route: 061

REACTIONS (1)
  - Drug ineffective [Unknown]
